FAERS Safety Report 6007250-1 (Version None)
Quarter: 2008Q4

REPORT INFORMATION
  Report Type: 
  Country: None (occurrence: None)
  Receive Date: 20081217
  Receipt Date: 20080311
  Transmission Date: 20090506
  Serious: No
  Sender: FDA-Public Use
  Company Number: US-ASTRAZENECA-2008UW02551

PATIENT
  Age: 24590 Day
  Sex: Female
  Weight: 57.7 kg

DRUGS (14)
  1. CRESTOR [Suspect]
     Indication: DYSLIPIDAEMIA
     Route: 048
     Dates: start: 20070628, end: 20070731
  2. CRESTOR [Suspect]
     Indication: LIPOPROTEIN (A) INCREASED
     Route: 048
     Dates: start: 20070628, end: 20070731
  3. CRESTOR [Suspect]
     Route: 048
     Dates: start: 20070731, end: 20080129
  4. CRESTOR [Suspect]
     Route: 048
     Dates: start: 20070731, end: 20080129
  5. ZETIA [Suspect]
     Indication: DYSLIPIDAEMIA
     Route: 048
  6. ZETIA [Suspect]
     Indication: LIPOPROTEIN (A) INCREASED
     Route: 048
  7. TOPROL-XL [Suspect]
     Indication: HYPERTENSION
     Route: 048
  8. TOPROL-XL [Suspect]
     Indication: TACHYCARDIA
     Route: 048
  9. ASPIRIN [Concomitant]
  10. BUSPAR [Concomitant]
  11. SYNTHROID [Concomitant]
     Indication: THYROID DISORDER
     Route: 048
  12. BONIVA [Concomitant]
  13. ACIPHEX [Concomitant]
     Indication: GASTROOESOPHAGEAL REFLUX DISEASE
     Route: 048
  14. ALPRAZOLAM [Concomitant]

REACTIONS (1)
  - ALOPECIA [None]
